FAERS Safety Report 8385678-2 (Version None)
Quarter: 2012Q2

REPORT INFORMATION
  Report Type: 
  Country: None (occurrence: None)
  Receive Date: 20120525
  Receipt Date: 20120522
  Transmission Date: 20120825
  Serious: Yes (Death, Hospitalization)
  Sender: FDA-Public Use
  Company Number: US-PFIZER INC-2012123867

PATIENT
  Sex: Female

DRUGS (2)
  1. XALKORI [Suspect]
     Dosage: 250 MG, 2X/DAY
     Route: 048
     Dates: start: 20111215, end: 20120501
  2. XALKORI [Suspect]
     Dosage: 250 MG, 1X/DAY
     Route: 048

REACTIONS (7)
  - PNEUMONITIS [None]
  - VOMITING [None]
  - OEDEMA [None]
  - NEOPLASM MALIGNANT [None]
  - DISEASE PROGRESSION [None]
  - NAUSEA [None]
  - DYSGEUSIA [None]
